FAERS Safety Report 20154832 (Version 1)
Quarter: 2021Q4

REPORT INFORMATION
  Report Type: Spontaneous
  Country: CA (occurrence: CA)
  Receive Date: 20211207
  Receipt Date: 20211207
  Transmission Date: 20220303
  Serious: Yes (Death)
  Sender: FDA-Public Use
  Company Number: CA-TEVA-2021-CA-1984165

PATIENT
  Age: 51 Year
  Sex: Male
  Weight: 87 kg

DRUGS (8)
  1. FENTANYL [Suspect]
     Active Substance: FENTANYL
     Route: 065
  2. CODEINE [Suspect]
     Active Substance: CODEINE
     Route: 065
  3. HALOPERIDOL [Concomitant]
     Active Substance: HALOPERIDOL
  4. MIRTAZAPINE [Concomitant]
     Active Substance: MIRTAZAPINE
  5. MORPHINE [Concomitant]
     Active Substance: MORPHINE
  6. OLANZAPINE [Concomitant]
     Active Substance: OLANZAPINE
  7. QUETIAPINE [Concomitant]
     Active Substance: QUETIAPINE
  8. ZOPICLONE [Concomitant]
     Active Substance: ZOPICLONE

REACTIONS (1)
  - Death [Fatal]
